FAERS Safety Report 5659051-1 (Version None)
Quarter: 2008Q1

REPORT INFORMATION
  Report Type: 
  Country: None (occurrence: None)
  Receive Date: 20080310
  Receipt Date: 20071019
  Transmission Date: 20080703
  Serious: No
  Sender: FDA-Public Use
  Company Number: US-BAYER-200713430BCC

PATIENT
  Age: 81 Year
  Sex: Female
  Weight: 59 kg

DRUGS (5)
  1. ALEVE [Suspect]
     Indication: PAIN IN EXTREMITY
     Dosage: TOTAL DAILY DOSE: 220 MG  UNIT DOSE: 220 MG
     Route: 048
     Dates: start: 20071017
  2. ALEVE [Suspect]
     Dosage: TOTAL DAILY DOSE: 220 MG  UNIT DOSE: 220 MG
     Route: 048
     Dates: start: 20071019
  3. TYLENOL (CAPLET) [Suspect]
     Indication: PAIN IN EXTREMITY
     Dates: start: 20071018
  4. PREDNISONE TAB [Suspect]
     Indication: PAIN IN EXTREMITY
     Dosage: TOTAL DAILY DOSE: 10 MG  UNIT DOSE: 10 MG
     Dates: start: 20071019
  5. SYNTHROID [Concomitant]

REACTIONS (3)
  - ASTHENIA [None]
  - DIZZINESS [None]
  - FEELING HOT [None]
